FAERS Safety Report 8096487-6 (Version None)
Quarter: 2012Q1

REPORT INFORMATION
  Report Type: 
  Country: None (occurrence: None)
  Receive Date: 20120129
  Receipt Date: 20111221
  Transmission Date: 20120608
  Serious: No
  Sender: FDA-Public Use
  Company Number: US-ABBOTT-11P-163-0885495-00

PATIENT
  Age: 48 Year
  Sex: Male

DRUGS (3)
  1. HUMIRA [Suspect]
     Indication: PSORIATIC ARTHROPATHY
     Dates: start: 20110901, end: 20111201
  2. METHOTREXATE [Concomitant]
     Indication: PRODUCT USED FOR UNKNOWN INDICATION
  3. HUMIRA [Suspect]
     Dates: start: 20111220

REACTIONS (2)
  - BACTERIAL INFECTION [None]
  - INAPPROPRIATE SCHEDULE OF DRUG ADMINISTRATION [None]
